FAERS Safety Report 15251207 (Version 2)
Quarter: 2018Q3

REPORT INFORMATION
  Report Type: Spontaneous
  Country: US (occurrence: US)
  Receive Date: 20180807
  Receipt Date: 20180904
  Transmission Date: 20181010
  Serious: No
  Sender: FDA-Public Use
  Company Number: US-ASTRAZENECA-2018SE89679

PATIENT
  Age: 21937 Day
  Sex: Female

DRUGS (2)
  1. BYDUREON [Suspect]
     Active Substance: EXENATIDE
     Indication: TYPE 2 DIABETES MELLITUS
     Route: 058
  2. BYETTA [Concomitant]
     Active Substance: EXENATIDE
     Dosage: TWO TIMES A DAY

REACTIONS (6)
  - Intentional product misuse [Unknown]
  - Product leakage [Unknown]
  - Injection site mass [Unknown]
  - Device malfunction [Unknown]
  - Underdose [Unknown]
  - Injection site pain [Unknown]
